FAERS Safety Report 8449309 (Version 4)
Quarter: 2013Q2

REPORT INFORMATION
  Report Type: Spontaneous
  Country: US (occurrence: US)
  Receive Date: 20120308
  Receipt Date: 20130516
  Transmission Date: 20140414
  Serious: Yes (Death, Hospitalization)
  Sender: FDA-Public Use
  Company Number: US-B.I. PHARMACEUTICALS,INC./RIDGEFIELD-2012-BP-04353BP

PATIENT
  Age: 81 Year
  Sex: Female
  Weight: 65.77 kg

DRUGS (13)
  1. PRADAXA [Suspect]
     Indication: ATRIAL FIBRILLATION
     Dosage: 150 MG
     Route: 048
     Dates: start: 20110128, end: 20110306
  2. PRADAXA [Suspect]
     Indication: MITRAL VALVE REPLACEMENT
  3. LASIX [Concomitant]
     Indication: OEDEMA PERIPHERAL
     Dosage: 80 MG
     Route: 048
     Dates: start: 2004
  4. ARICEPT [Concomitant]
     Indication: DEMENTIA
     Dosage: 5 MG
     Route: 048
     Dates: start: 2004
  5. SEROQUEL [Concomitant]
     Dosage: 5 MG
     Route: 048
     Dates: start: 2004
  6. ATENOLOL [Concomitant]
     Indication: HYPERTENSION
     Dosage: 25 MG
     Route: 048
     Dates: start: 2004
  7. LANOXIN [Concomitant]
     Indication: CARDIAC FAILURE CONGESTIVE
     Dosage: 0.125 MG
     Route: 048
     Dates: start: 2004
  8. KLOR-CON [Concomitant]
     Indication: MINERAL SUPPLEMENTATION
     Dosage: 20 MEQ
     Route: 048
     Dates: start: 2004
  9. DEXAMETHASONE [Concomitant]
     Dosage: 2 MG
     Route: 048
  10. B12 [Concomitant]
  11. OXYGEN [Concomitant]
     Indication: CHRONIC OBSTRUCTIVE PULMONARY DISEASE
     Dates: start: 2004
  12. METAXALONE [Concomitant]
     Dosage: 1.25 MG
     Route: 048
  13. MIRALAX [Concomitant]
     Indication: CONSTIPATION
     Route: 048

REACTIONS (4)
  - Coronary artery disease [Fatal]
  - Gastrointestinal haemorrhage [Fatal]
  - Haemorrhagic anaemia [Unknown]
  - Contusion [Not Recovered/Not Resolved]
